FAERS Safety Report 5695448-1 (Version None)
Quarter: 2008Q2

REPORT INFORMATION
  Report Type: 
  Country: None (occurrence: None)
  Receive Date: 20080403
  Receipt Date: 20080320
  Transmission Date: 20081010
  Serious: Yes (Other)
  Sender: FDA-Public Use
  Company Number: OPER20080058

PATIENT
  Age: 18 Year
  Sex: Male
  Weight: 113.3993 kg

DRUGS (1)
  1. OPANA ER [Suspect]
     Dosage: 30 MG, ONCE
     Dates: start: 20080303, end: 20080303

REACTIONS (1)
  - DRUG DIVERSION [None]
